FAERS Safety Report 8410746-6 (Version None)
Quarter: 2012Q2

REPORT INFORMATION
  Report Type: 
  Country: None (occurrence: None)
  Receive Date: 20120605
  Receipt Date: 20120524
  Transmission Date: 20120825
  Serious: Yes (Disabling)
  Sender: FDA-Public Use
  Company Number: BR-NOVOPROD-347397

PATIENT
  Age: 64 Year
  Sex: Female
  Weight: 65 kg

DRUGS (4)
  1. NOVORAPID [Suspect]
     Indication: DIABETES MELLITUS
     Dosage: UNK
     Route: 065
     Dates: start: 20120301
  2. DIAMICRON [Concomitant]
     Indication: DIABETES MELLITUS
     Dosage: 2 TAB, QD
     Route: 048
  3. LEVEMIR [Suspect]
     Indication: DIABETES MELLITUS
     Dosage: UNK
     Route: 065
     Dates: start: 20120301
  4. GALVUS [Concomitant]
     Dosage: 1 TAB, QD
     Route: 048

REACTIONS (1)
  - BLINDNESS [None]
